FAERS Safety Report 23484922 (Version 1)
Quarter: 2024Q1

REPORT INFORMATION
  Report Type: Report from Study
  Country: US (occurrence: US)
  Receive Date: 20240206
  Receipt Date: 20240206
  Transmission Date: 20240410
  Serious: No
  Sender: FDA-Public Use
  Company Number: US-ORG100014127-2023000142

PATIENT
  Age: 51 Year
  Sex: Male

DRUGS (8)
  1. LYSODREN [Suspect]
     Active Substance: MITOTANE
     Indication: Adrenal gland cancer
     Dosage: 08 TABLETS DAILY
     Route: 048
     Dates: start: 20221216, end: 20230123
  2. Apple cider tab vinegar [Concomitant]
     Indication: Product used for unknown indication
  3. Azelastine spr 0.1% [Concomitant]
     Indication: Product used for unknown indication
  4. Cholestyram pow 4gm [Concomitant]
     Indication: Product used for unknown indication
  5. Flonase algy spr 50mcg [Concomitant]
     Indication: Product used for unknown indication
  6. Hydrocort cream 0.5% [Concomitant]
     Indication: Product used for unknown indication
  7. Miralax pow 3350 [Concomitant]
     Indication: Product used for unknown indication
  8. ONDANSETRON [Concomitant]
     Active Substance: ONDANSETRON
     Indication: Product used for unknown indication

REACTIONS (5)
  - Dehydration [Recovered/Resolved]
  - Migraine [Recovered/Resolved]
  - Nausea [Recovered/Resolved]
  - Vomiting [Recovered/Resolved]
  - Drug ineffective [Unknown]

NARRATIVE: CASE EVENT DATE: 20230101
